FAERS Safety Report 18131461 (Version 1)
Quarter: 2020Q3

REPORT INFORMATION
  Report Type: Spontaneous
  Country: CN (occurrence: CN)
  Receive Date: 20200810
  Receipt Date: 20200810
  Transmission Date: 20201103
  Serious: Yes (Other)
  Sender: FDA-Public Use
  Company Number: CN-PFIZER INC-2020298720

PATIENT
  Age: 3 Year
  Sex: Female

DRUGS (2)
  1. METHYLPREDNISOLONE SODIUM SUCCINATE. [Suspect]
     Active Substance: METHYLPREDNISOLONE SODIUM SUCCINATE
     Indication: PNEUMONIA
     Dosage: 17 MG, 1X/DAY
     Route: 041
     Dates: start: 20200722, end: 20200722
  2. CEFUROXIME SODIUM FOR INJECTION [Concomitant]
     Active Substance: CEFUROXIME SODIUM
     Indication: PNEUMONIA
     Dosage: 0.5 MG, 1X/DAY
     Route: 041
     Dates: start: 20200722, end: 20200722

REACTIONS (1)
  - Rash pruritic [Recovered/Resolved]

NARRATIVE: CASE EVENT DATE: 20200722
